FAERS Safety Report 11281949 (Version 1)
Quarter: 2015Q3

REPORT INFORMATION
  Report Type: Report from Study
  Country: US (occurrence: US)
  Receive Date: 20150718
  Receipt Date: 20150718
  Transmission Date: 20151125
  Serious: No
  Sender: FDA-Public Use
  Company Number: US-B.I. PHARMACEUTICALS,INC./RIDGEFIELD-2015-BI-36524BP

PATIENT
  Age: 37 Year
  Sex: Female
  Weight: 70 kg

DRUGS (3)
  1. HUMALOG [Concomitant]
     Active Substance: INSULIN LISPRO
     Indication: DIABETES MELLITUS
     Dosage: FORMULATION: INFUSION, VIA INSULIN PUMP
     Route: 050
     Dates: start: 1999
  2. FEXOFENADINE [Concomitant]
     Active Substance: FEXOFENADINE\FEXOFENADINE HYDROCHLORIDE
     Indication: DRUG HYPERSENSITIVITY
     Dosage: 180 MG
     Route: 048
  3. GLYXAMBI [Suspect]
     Active Substance: EMPAGLIFLOZIN\LINAGLIPTIN
     Indication: TYPE 1 DIABETES MELLITUS
     Dosage: DOSE PER APPLICATION AND DAILY DOSE: 10 MG/ 5 MG
     Route: 048
     Dates: start: 201505

REACTIONS (3)
  - Blood insulin decreased [Not Recovered/Not Resolved]
  - Weight decreased [Not Recovered/Not Resolved]
  - Off label use [Unknown]

NARRATIVE: CASE EVENT DATE: 201505
